FAERS Safety Report 6272144-3 (Version None)
Quarter: 2009Q3

REPORT INFORMATION
  Report Type: 
  Country: None (occurrence: None)
  Receive Date: 20090717
  Receipt Date: 20090707
  Transmission Date: 20100115
  Serious: Yes (Hospitalization)
  Sender: FDA-Public Use
  Company Number: FR-PFIZER INC-2009236820

PATIENT
  Age: 57 Year

DRUGS (2)
  1. SUTENT [Suspect]
     Indication: MALIGNANT MESENTERIC NEOPLASM
     Dosage: UNK
     Dates: start: 20080201, end: 20080815
  2. GLEEVEC [Suspect]
     Indication: MALIGNANT MESENTERIC NEOPLASM
     Dosage: UNK
     Dates: start: 20060701, end: 20080201

REACTIONS (1)
  - DISSEMINATED TUBERCULOSIS [None]
